FAERS Safety Report 8290393-X (Version None)
Quarter: 2012Q2

REPORT INFORMATION
  Report Type: 
  Country: None (occurrence: None)
  Receive Date: 20120413
  Receipt Date: 20120413
  Transmission Date: 20120825
  Serious: Yes (Other)
  Sender: FDA-Public Use
  Company Number: None

PATIENT
  Sex: Female
  Weight: 72.5755 kg

DRUGS (2)
  1. BOTOX [Suspect]
     Indication: TORTICOLLIS
     Dosage: 125 UNITS 1X IM-MULTIPLE MUSCLES
     Route: 030
     Dates: start: 20111027
  2. BOTOX [Suspect]
     Indication: ESSENTIAL TREMOR
     Dosage: 125 UNITS 1X IM-MULTIPLE MUSCLES
     Route: 030
     Dates: start: 20111027

REACTIONS (4)
  - FATIGUE [None]
  - DYSPNOEA [None]
  - ASTHENIA [None]
  - DYSPHAGIA [None]
